FAERS Safety Report 5929345-0 (Version None)
Quarter: 2008Q4

REPORT INFORMATION
  Report Type: 
  Country: None (occurrence: None)
  Receive Date: 20081023
  Receipt Date: 20081023
  Transmission Date: 20090506
  Serious: Yes (Other)
  Sender: FDA-Public Use
  Company Number: None

PATIENT
  Sex: Female

DRUGS (17)
  1. REVLIMID [Suspect]
     Indication: MULTIPLE MYELOMA
     Dosage: 15MG DAILY 21D/28D ORAL
     Route: 048
  2. DEXAMETHASONE 4MG TAB [Suspect]
     Indication: MULTIPLE MYELOMA
     Dosage: 40MG 40MG ONCE A WEEK ORAL
     Route: 048
  3. PROCRIT [Concomitant]
  4. ATENOLOL [Concomitant]
  5. MOTRIN [Concomitant]
  6. VICODIN [Concomitant]
  7. OMEPRAZOLE [Concomitant]
  8. LASIX [Concomitant]
  9. K-TAB [Concomitant]
  10. ISORDIL [Concomitant]
  11. ATIVAN [Concomitant]
  12. COMPAZINE [Concomitant]
  13. NOVOLIN [Concomitant]
  14. GLIPIZIDE [Concomitant]
  15. QVAR 40 [Concomitant]
  16. WARFARIN SODIUM [Concomitant]
  17. MEVACOR [Concomitant]

REACTIONS (6)
  - BRONCHITIS [None]
  - DIARRHOEA [None]
  - HAIR DYE USER [None]
  - RASH [None]
  - SWELLING FACE [None]
  - VIRAL INFECTION [None]
